FAERS Safety Report 7050728-2 (Version None)
Quarter: 2010Q4

REPORT INFORMATION
  Report Type: 
  Country: None (occurrence: None)
  Receive Date: 20101019
  Receipt Date: 20101006
  Transmission Date: 20110411
  Serious: No
  Sender: FDA-Public Use
  Company Number: US-BIOGENIDEC-2010BI018772

PATIENT
  Sex: Female

DRUGS (1)
  1. TYSABRI [Suspect]
     Indication: MULTIPLE SCLEROSIS
     Route: 042
     Dates: start: 20080129

REACTIONS (11)
  - DERMATITIS CONTACT [None]
  - DYSURIA [None]
  - FAECAL INCONTINENCE [None]
  - FATIGUE [None]
  - HYPOAESTHESIA [None]
  - MULTIPLE SCLEROSIS RELAPSE [None]
  - PARAESTHESIA [None]
  - PERONEAL NERVE PALSY [None]
  - POOR VENOUS ACCESS [None]
  - TOOTH FRACTURE [None]
  - URINARY TRACT INFECTION [None]
